FAERS Safety Report 8647083 (Version 4)
Quarter: 2012Q4

REPORT INFORMATION
  Report Type: 
  Country: US (occurrence: US)
  Receive Date: 20120703
  Receipt Date: 20121009
  Transmission Date: 20130627
  Serious: Yes (Hospitalization)
  Sender: FDA-Public Use
  Company Number: US-ACTELION-A-US2012-67888

PATIENT
  Age: 54 Year
  Sex: Female

DRUGS (4)
  1. TRACLEER [Suspect]
     Indication: PULMONARY ARTERIAL HYPERTENSION
     Dosage: 125 mg, bid
     Route: 048
     Dates: start: 20120320
  2. TRACLEER [Suspect]
     Dosage: UNK
     Route: 048
     Dates: end: 20120319
  3. SILDENAFIL [Concomitant]
  4. TYVASO [Concomitant]

REACTIONS (7)
  - Hallucination [Recovering/Resolving]
  - Dehydration [Recovering/Resolving]
  - Hepatic cirrhosis [Recovering/Resolving]
  - Fatty liver alcoholic [Recovering/Resolving]
  - Oedema peripheral [Unknown]
  - Aspartate aminotransferase increased [Recovering/Resolving]
  - Blood bilirubin increased [Recovering/Resolving]
